FAERS Safety Report 8197022-4 (Version None)
Quarter: 2012Q1

REPORT INFORMATION
  Report Type: 
  Country: None (occurrence: None)
  Receive Date: 20120309
  Receipt Date: 20120228
  Transmission Date: 20120608
  Serious: Yes (Hospitalization)
  Sender: FDA-Public Use
  Company Number: US-ELI_LILLY_AND_COMPANY-US201103004193

PATIENT
  Sex: Female

DRUGS (6)
  1. FORTEO [Suspect]
     Dosage: 20 UG, QD
  2. FORTEO [Suspect]
     Dosage: 20 UG, QD
     Route: 065
     Dates: end: 20120101
  3. HIZAAR [Concomitant]
  4. FORTEO [Suspect]
     Indication: OSTEOPOROSIS
     Dosage: 20 UG, QD
     Dates: start: 20100601
  5. FORTEO [Suspect]
     Dosage: 20 UG, QD
  6. LIPITOR [Concomitant]

REACTIONS (7)
  - CLUMSINESS [None]
  - BRONCHOPNEUMONIA [None]
  - MUSCULOSKELETAL STIFFNESS [None]
  - MUSCLE SPASMS [None]
  - INNER EAR DISORDER [None]
  - ATRIAL FIBRILLATION [None]
  - DIZZINESS [None]
